FAERS Safety Report 8871684 (Version 1)
Quarter: 2012Q4

REPORT INFORMATION
  Report Type: 
  Country: US (occurrence: US)
  Receive Date: 20121026
  Receipt Date: 20121026
  Transmission Date: 20130627
  Serious: No
  Sender: FDA-Public Use
  Company Number: US-AMGEN-USASP2012048694

PATIENT
  Sex: Male
  Weight: 94.33 kg

DRUGS (6)
  1. ENBREL [Suspect]
     Indication: PRODUCT USED FOR UNKNOWN INDICATION
     Dosage: 50 mg, qwk
     Route: 058
  2. PRAVASTATIN [Concomitant]
     Dosage: 10 mg, UNK
  3. METFORMIN [Concomitant]
     Dosage: 500 mg, UNK
  4. METOPROLOL TARTRATO [Concomitant]
     Dosage: 25 mg, UNK
  5. FISH OIL [Concomitant]
     Dosage: UNK
  6. ASPARIN [Concomitant]
     Dosage: 81 mg, UNK

REACTIONS (1)
  - Malaise [Unknown]
